FAERS Safety Report 8293541-0 (Version None)
Quarter: 2012Q2

REPORT INFORMATION
  Report Type: 
  Country: None (occurrence: None)
  Receive Date: 20120418
  Receipt Date: 20120410
  Transmission Date: 20120825
  Serious: Yes (Hospitalization, Other)
  Sender: FDA-Public Use
  Company Number: FR-BIOGENIDEC-2011BI031541

PATIENT
  Age: 33 Year
  Sex: Female

DRUGS (4)
  1. LYRICA [Concomitant]
     Indication: PAIN
  2. TYSABRI [Suspect]
     Indication: MULTIPLE SCLEROSIS
     Route: 042
     Dates: start: 20071001, end: 20110722
  3. CYMBALTA [Concomitant]
     Indication: PAIN
  4. MIDODRINE HYDROCHLORIDE [Concomitant]
     Indication: ORTHOSTATIC HYPOTENSION

REACTIONS (4)
  - PROGRESSIVE MULTIFOCAL LEUKOENCEPHALOPATHY [None]
  - IMMUNE RECONSTITUTION SYNDROME [None]
  - EPILEPSY [None]
  - OROPHARYNGEAL PAIN [None]
